FAERS Safety Report 8478562 (Version 2)
Quarter: 2012Q4

REPORT INFORMATION
  Report Type: 
  Country: NL (occurrence: NL)
  Receive Date: 20120327
  Receipt Date: 20120910
  Transmission Date: 20130627
  Serious: Yes (Other)
  Sender: FDA-Public Use
  Company Number: NL-ROCHE-1051845

PATIENT
  Age: 77 None
  Sex: Female

DRUGS (8)
  1. XELODA [Suspect]
     Indication: METASTATIC GASTRIC CANCER
     Route: 048
     Dates: start: 20120109, end: 201202
  2. FOSINOPRIL [Concomitant]
     Route: 047
  3. UFT [Concomitant]
     Route: 065
  4. TRAVATAN [Concomitant]
     Dosage: 1 DROP
     Route: 047
  5. HYDROCHLOROTHIAZIDE [Concomitant]
     Route: 065
  6. PERSANTIN RETARD [Concomitant]
     Route: 065
  7. EUTHYROX [Concomitant]
     Route: 065
  8. ACETYLSALICYLIC ACID [Concomitant]
     Route: 065

REACTIONS (2)
  - Skin reaction [Recovering/Resolving]
  - Palmar-plantar erythrodysaesthesia syndrome [Unknown]
